FAERS Safety Report 10611927 (Version 6)
Quarter: 2015Q1

REPORT INFORMATION
  Report Type: Report from Study
  Country: US (occurrence: US)
  Receive Date: 20141126
  Receipt Date: 20150213
  Transmission Date: 20150720
  Serious: Yes (Hospitalization, Other)
  Sender: FDA-Public Use
  Company Number: US-ACTELION-A-NJ2014-108764

PATIENT
  Age: 77 Year
  Sex: Female

DRUGS (2)
  1. VELETRI [Suspect]
     Active Substance: EPOPROSTENOL
     Indication: PULMONARY ARTERIAL HYPERTENSION
     Dosage: 17 NG/KG, PER MIN
     Route: 042
     Dates: start: 20140708
  2. ASPIRIN. [Concomitant]
     Active Substance: ASPIRIN

REACTIONS (11)
  - Breast cancer [Unknown]
  - Condition aggravated [Unknown]
  - Palpitations [Unknown]
  - Asthenia [Unknown]
  - Hypovolaemia [Unknown]
  - Pleural effusion [Unknown]
  - Overdose [Unknown]
  - Dyspnoea [Unknown]
  - Heart rate increased [Unknown]
  - Heart valve replacement [Unknown]
  - Oedema peripheral [Unknown]

NARRATIVE: CASE EVENT DATE: 20141117
